FAERS Safety Report 19123044 (Version 4)
Quarter: 2022Q1

REPORT INFORMATION
  Report Type: Spontaneous
  Country: US (occurrence: US)
  Receive Date: 20210412
  Receipt Date: 20220125
  Transmission Date: 20220423
  Serious: No
  Sender: FDA-Public Use
  Company Number: US-PFIZER INC-2018422021

PATIENT
  Age: 67 Year
  Sex: Female

DRUGS (3)
  1. PREMARIN [Suspect]
     Active Substance: ESTROGENS, CONJUGATED
     Dosage: 0.9 MG, 2X/DAY
  2. PREMARIN [Suspect]
     Active Substance: ESTROGENS, CONJUGATED
     Dosage: 1.8 MG, DAILY (TAKES 2 TABLETS PER DAY)
     Route: 048
  3. PREMARIN [Suspect]
     Active Substance: ESTROGENS, CONJUGATED
     Dosage: 2 DF, DAILY (TAKES 2 TABLETS DAILY)
     Route: 048

REACTIONS (3)
  - Off label use [Unknown]
  - Product prescribing error [Unknown]
  - Frustration tolerance decreased [Unknown]
